FAERS Safety Report 12470553 (Version 2)
Quarter: 2016Q3

REPORT INFORMATION
  Report Type: Spontaneous
  Country: IT (occurrence: IT)
  Receive Date: 20160616
  Receipt Date: 20160713
  Transmission Date: 20161109
  Serious: Yes (Hospitalization)
  Sender: FDA-Public Use
  Company Number: IT-ACCORD-041464

PATIENT
  Age: 69 Year
  Sex: Male

DRUGS (8)
  1. QUETIAPINE. [Suspect]
     Active Substance: QUETIAPINE
     Indication: BIPOLAR DISORDER
     Route: 048
     Dates: start: 20160502, end: 20160509
  2. DELORAZEPAM [Suspect]
     Active Substance: DELORAZEPAM
     Indication: AGITATION
     Route: 048
     Dates: start: 20160502, end: 20160509
  3. LIORESAL [Concomitant]
     Active Substance: BACLOFEN
     Dosage: STRENGTH 25 MG
  4. LANSOPRAZOLE. [Concomitant]
     Active Substance: LANSOPRAZOLE
  5. ANAFRANIL [Suspect]
     Active Substance: CLOMIPRAMINE HYDROCHLORIDE
     Indication: AGITATION
     Dosage: STRENGTH 25 MG
     Route: 048
     Dates: start: 20160502, end: 20160509
  6. METFORAL [Concomitant]
     Active Substance: METFORMIN HYDROCHLORIDE
     Dosage: STRENGTH 850 MG
  7. CARDIRENE [Concomitant]
     Active Substance: ASPIRIN DL-LYSINE
     Dosage: STRENGTH 160 MG
  8. LASIX [Concomitant]
     Active Substance: FUROSEMIDE
     Dosage: STRENGTH 25 MG

REACTIONS (2)
  - Electrocardiogram QT prolonged [Recovered/Resolved]
  - Coma [Recovered/Resolved]

NARRATIVE: CASE EVENT DATE: 20160510
